FAERS Safety Report 7248082-6 (Version None)
Quarter: 2011Q1

REPORT INFORMATION
  Report Type: 
  Country: None (occurrence: None)
  Receive Date: 20110127
  Receipt Date: 20100511
  Transmission Date: 20110831
  Serious: No
  Sender: FDA-Public Use
  Company Number: US-MYLANLABS-2010S1008422

PATIENT
  Age: 46 Year
  Sex: Male
  Weight: 68.04 kg

DRUGS (2)
  1. MULTIVITAMIN [Concomitant]
  2. PHENYTEK [Suspect]
     Indication: CONVULSION
     Route: 048
     Dates: start: 20060101

REACTIONS (1)
  - DRUG SCREEN FALSE POSITIVE [None]
